FAERS Safety Report 4964440-4 (Version None)
Quarter: 2006Q1

REPORT INFORMATION
  Report Type: 
  Country: None (occurrence: None)
  Receive Date: 20060331
  Receipt Date: 20060314
  Transmission Date: 20060701
  Serious: Yes (Hospitalization, Other)
  Sender: FDA-Public Use
  Company Number: US_0509121756

PATIENT
  Age: 23 Year
  Sex: Male
  Weight: 117.9 kg

DRUGS (3)
  1. ZYPREXA [Suspect]
     Dosage: 10 MG, 2/D, ORAL
     Route: 048
     Dates: start: 20030301, end: 20030601
  2. ZIPRASIDONE HCL [Concomitant]
  3. PREDNISONE TAB [Concomitant]

REACTIONS (22)
  - ABDOMINAL PAIN [None]
  - ANXIETY [None]
  - BLOOD CHOLESTEROL ABNORMAL [None]
  - BLOOD GLUCOSE FLUCTUATION [None]
  - BLOOD TRIGLYCERIDES INCREASED [None]
  - CEREBROVASCULAR ACCIDENT [None]
  - COLITIS [None]
  - DIABETES MELLITUS NON-INSULIN-DEPENDENT [None]
  - DISTURBANCE IN ATTENTION [None]
  - EMOTIONAL DISTRESS [None]
  - FACTOR V LEIDEN MUTATION [None]
  - GASTROINTESTINAL CANDIDIASIS [None]
  - HAEMATOCHEZIA [None]
  - HYPERGLYCAEMIA [None]
  - LEUKOCYTOSIS [None]
  - MENTAL IMPAIRMENT [None]
  - OESOPHAGEAL CANDIDIASIS [None]
  - PNEUMONIA PRIMARY ATYPICAL [None]
  - SELF-INJURIOUS IDEATION [None]
  - SUICIDE ATTEMPT [None]
  - TREATMENT NONCOMPLIANCE [None]
  - WEIGHT INCREASED [None]
